FAERS Safety Report 6575711-2 (Version None)
Quarter: 2010Q1

REPORT INFORMATION
  Report Type: 
  Country: None (occurrence: None)
  Receive Date: 20100208
  Receipt Date: 20100208
  Transmission Date: 20100710
  Serious: Yes (Hospitalization, Other)
  Sender: FDA-Public Use
  Company Number: None

PATIENT
  Sex: Female
  Weight: 64.8644 kg

DRUGS (2)
  1. AMITIZA [Suspect]
     Indication: ABDOMINAL PAIN
     Dosage: 1 CAP BID PO
     Route: 048
     Dates: start: 20070804, end: 20070808
  2. AMITIZA [Suspect]
     Indication: INTESTINAL FUNCTIONAL DISORDER
     Dosage: 1 CAP BID PO
     Route: 048
     Dates: start: 20070804, end: 20070808

REACTIONS (3)
  - COLITIS ISCHAEMIC [None]
  - CONSTIPATION [None]
  - HAEMORRHAGE [None]
